FAERS Safety Report 25359545 (Version 1)
Quarter: 2025Q2

REPORT INFORMATION
  Report Type: Spontaneous
  Country: BG (occurrence: BG)
  Receive Date: 20250526
  Receipt Date: 20250526
  Transmission Date: 20250716
  Serious: Yes (Hospitalization)
  Sender: BOEHRINGER INGELHEIM
  Company Number: BG-BoehringerIngelheim-2025-BI-072536

PATIENT
  Age: 62 Year
  Sex: Male

DRUGS (4)
  1. PRAMIPEXOLE [Suspect]
     Active Substance: PRAMIPEXOLE
     Indication: Parkinson^s disease
  2. levodopa/ benzerazide [Concomitant]
     Indication: Parkinson^s disease
  3. ROTIGOTINE [Concomitant]
     Active Substance: ROTIGOTINE
     Indication: Parkinson^s disease
  4. AMANTADINE [Concomitant]
     Active Substance: AMANTADINE
     Indication: Parkinson^s disease

REACTIONS (3)
  - Postoperative delirium [Recovered/Resolved]
  - Musculoskeletal stiffness [Recovered/Resolved]
  - Post procedural complication [Recovered/Resolved]
